FAERS Safety Report 21138080 (Version 1)
Quarter: 2022Q3

REPORT INFORMATION
  Report Type: Spontaneous
  Country: US (occurrence: US)
  Receive Date: 20220727
  Receipt Date: 20220727
  Transmission Date: 20221027
  Serious: No
  Sender: FDA-Public Use
  Company Number: US-PFIZER INC-PV202200030069

PATIENT
  Age: 80 Year

DRUGS (1)
  1. PREMARIN [Suspect]
     Active Substance: ESTROGENS, CONJUGATED
     Indication: Neoplasm malignant
     Dosage: UNK

REACTIONS (4)
  - Arthritis [Unknown]
  - Bedridden [Unknown]
  - Gait inability [Unknown]
  - Off label use [Unknown]
